FAERS Safety Report 5149219-5 (Version None)
Quarter: 2006Q4

REPORT INFORMATION
  Report Type: 
  Country: None (occurrence: None)
  Receive Date: 20061113
  Receipt Date: 20050913
  Transmission Date: 20070319
  Serious: No
  Sender: FDA-Public Use
  Company Number: US-GLAXOSMITHKLINE-A0574045A

PATIENT
  Age: 80 Year
  Sex: Male

DRUGS (20)
  1. COREG [Suspect]
     Dosage: 6.25MG PER DAY
     Route: 048
     Dates: start: 20050901
  2. ASCORBIC ACID [Concomitant]
     Dosage: 500MG PER DAY
     Route: 065
  3. ASPIRIN [Concomitant]
     Dosage: 325MG PER DAY
     Route: 065
  4. CAPTOPRIL [Concomitant]
     Dosage: 25MG TWICE PER DAY
     Route: 065
  5. ATIVAN [Concomitant]
     Dosage: .5MG AS REQUIRED
     Route: 065
  6. DOCUSATE SODIUM [Concomitant]
     Dosage: 240MG IN THE MORNING
     Route: 065
  7. COUMADIN [Concomitant]
     Route: 065
  8. IBUPROFEN [Concomitant]
     Dosage: 600MG AS REQUIRED
     Route: 065
  9. LOVASTATIN [Concomitant]
     Dosage: 40MG AT NIGHT
     Route: 065
  10. VITAMIN CAP [Concomitant]
     Route: 065
  11. NITROGLYCERIN [Concomitant]
     Dosage: .4MG AS REQUIRED
     Route: 065
  12. TYLENOL PM [Concomitant]
     Dosage: 2CAP AT NIGHT
     Route: 048
  13. SOTALOL HYDROCHLORIDE [Concomitant]
     Dosage: 240MG AS REQUIRED
     Route: 065
  14. PLAVIX [Concomitant]
  15. VITAMIN B6 [Concomitant]
  16. FOLIC ACID [Concomitant]
     Dosage: 1MG PER DAY
     Route: 065
  17. OMEPRAZOLE [Concomitant]
  18. HYTRIN [Concomitant]
     Dosage: 2MG AT NIGHT
     Route: 065
  19. VITAMIN B-12 [Concomitant]
     Route: 065
  20. LOPRESSOR [Concomitant]
     Dosage: 25MG AT NIGHT
     Route: 065
     Dates: start: 20050914

REACTIONS (4)
  - ERYTHEMA [None]
  - PURPURA [None]
  - RASH [None]
  - SKIN DISCOLOURATION [None]
